FAERS Safety Report 10257879 (Version 2)
Quarter: 2014Q3

REPORT INFORMATION
  Report Type: Spontaneous
  Country: JP (occurrence: JP)
  Receive Date: 20140625
  Receipt Date: 20140715
  Transmission Date: 20150326
  Serious: Yes (Other)
  Sender: FDA-Public Use
  Company Number: JP-BRISTOL-MYERS SQUIBB COMPANY-21062716

PATIENT
  Age: 79 Year
  Sex: Male
  Weight: 55 kg

DRUGS (12)
  1. HALFDIGOXIN [Concomitant]
     Active Substance: DIGOXIN
  2. MICARDIS [Concomitant]
     Active Substance: TELMISARTAN
  3. VASOLAN [Concomitant]
     Active Substance: VERAPAMIL HYDROCHLORIDE
  4. LOXONIN [Concomitant]
     Active Substance: LOXOPROFEN SODIUM
  5. WARFARIN [Concomitant]
     Active Substance: WARFARIN
  6. ELIQUIS [Suspect]
     Active Substance: APIXABAN
     Indication: ATRIAL FIBRILLATION
     Dosage: TABS
     Route: 048
     Dates: start: 20140605, end: 20140611
  7. NORVASC [Concomitant]
     Active Substance: AMLODIPINE BESYLATE
  8. PRAVASTATIN SODIUM. [Concomitant]
     Active Substance: PRAVASTATIN SODIUM
  9. METGLUCO [Concomitant]
     Active Substance: METFORMIN HYDROCHLORIDE
  10. ROZEREM [Concomitant]
     Active Substance: RAMELTEON
  11. MUCOSTA [Concomitant]
     Active Substance: REBAMIPIDE
  12. XARELTO [Concomitant]
     Active Substance: RIVAROXABAN

REACTIONS (2)
  - Anaemia [Recovering/Resolving]
  - Renal cancer metastatic [Unknown]

NARRATIVE: CASE EVENT DATE: 20140601
